FAERS Safety Report 7636400-6 (Version None)
Quarter: 2011Q3

REPORT INFORMATION
  Report Type: 
  Country: None (occurrence: None)
  Receive Date: 20110726
  Receipt Date: 20110720
  Transmission Date: 20111222
  Serious: Yes (Hospitalization)
  Sender: FDA-Public Use
  Company Number: US-ALEXION-A201101027

PATIENT
  Sex: Female

DRUGS (11)
  1. MIRALAX [Concomitant]
     Dosage: UNK
  2. DOCUSATE [Concomitant]
     Indication: CONSTIPATION PROPHYLAXIS
     Dosage: UNK
  3. TRAZODONE HCL [Concomitant]
     Dosage: UNK
  4. SOLIRIS [Suspect]
     Indication: PAROXYSMAL NOCTURNAL HAEMOGLOBINURIA
     Dosage: 900 MG, Q2W
     Route: 042
     Dates: start: 20100401
  5. LITHIUM CARBONATE [Concomitant]
     Dosage: UNK
  6. FOLIC ACID [Concomitant]
     Dosage: UNK
  7. DILAUDID [Concomitant]
     Dosage: UNK
  8. CONTRACEPTIVES NOS [Concomitant]
     Dosage: UNK
  9. WARFARIN [Concomitant]
     Indication: THROMBOSIS PROPHYLAXIS
     Dosage: UNK
  10. VITAMIN B-12 [Concomitant]
     Dosage: UNK
  11. MELATONIN [Concomitant]
     Dosage: UNK

REACTIONS (4)
  - PLATELET TRANSFUSION [None]
  - MENORRHAGIA [None]
  - PACKED RED BLOOD CELL TRANSFUSION [None]
  - CONVERSION DISORDER [None]
